FAERS Safety Report 22285365 (Version 1)
Quarter: 2023Q2

REPORT INFORMATION
  Report Type: Spontaneous
  Country: US (occurrence: US)
  Receive Date: 20230504
  Receipt Date: 20230504
  Transmission Date: 20230722
  Serious: Yes (Hospitalization)
  Sender: FDA-Public Use
  Company Number: US-TEVA-2023-US-2881800

PATIENT
  Age: 75 Year
  Sex: Male

DRUGS (1)
  1. TESTOSTERONE [Suspect]
     Active Substance: TESTOSTERONE
     Indication: Product used for unknown indication
     Dosage: 1 PERCENT, 5 GRAM PACKET DAILY

REACTIONS (5)
  - Cerebrovascular accident [Recovered/Resolved]
  - Dreamy state [Recovered/Resolved]
  - Dizziness [Recovered/Resolved]
  - Dizziness [Recovered/Resolved]
  - Intentional dose omission [Recovered/Resolved]
